FAERS Safety Report 20655465 (Version 1)
Quarter: 2022Q1

REPORT INFORMATION
  Report Type: Spontaneous
  Country: US (occurrence: None)
  Receive Date: 20220330
  Receipt Date: 20220330
  Transmission Date: 20220423
  Serious: Yes (Death)
  Sender: FDA-Public Use
  Company Number: None

PATIENT
  Age: 79 Year
  Sex: Male
  Weight: 58.97 kg

DRUGS (8)
  1. VOTRIENT [Suspect]
     Active Substance: PAZOPANIB HYDROCHLORIDE
     Indication: Bladder neoplasm
     Dosage: FREQUENCY : DAILY;?
     Route: 048
     Dates: start: 202202, end: 202203
  2. TRAMADOL [Concomitant]
  3. MEGESTROL [Concomitant]
  4. PREDNISONE [Concomitant]
  5. TAMSULOSIN [Concomitant]
  6. Metoprolol Succ ER [Concomitant]
  7. DRONABINOL [Concomitant]
  8. LOSARTAN [Concomitant]
     Active Substance: LOSARTAN

REACTIONS (1)
  - Disease progression [None]

NARRATIVE: CASE EVENT DATE: 20220327
